FAERS Safety Report 6274854-0 (Version None)
Quarter: 2009Q3

REPORT INFORMATION
  Report Type: 
  Country: None (occurrence: None)
  Receive Date: 20090721
  Receipt Date: 20090715
  Transmission Date: 20100115
  Serious: Yes (Hospitalization, Other)
  Sender: FDA-Public Use
  Company Number: FR-BRISTOL-MYERS SQUIBB COMPANY-14705339

PATIENT
  Age: 15 Year
  Sex: Female

DRUGS (4)
  1. HYDREA [Suspect]
     Route: 048
     Dates: start: 20090427
  2. EXJADE [Suspect]
     Route: 048
     Dates: start: 20090427
  3. ROCEPHIN [Suspect]
     Indication: PYREXIA
     Route: 042
     Dates: start: 20090513, end: 20090515
  4. ZITHROMAX [Suspect]
     Indication: CAMPYLOBACTER INFECTION
     Route: 048
     Dates: start: 20090517, end: 20090519

REACTIONS (6)
  - CAMPYLOBACTER INFECTION [None]
  - CYTOLYTIC HEPATITIS [None]
  - HEPATOMEGALY [None]
  - JAUNDICE CHOLESTATIC [None]
  - PANCREATITIS [None]
  - PYREXIA [None]
